FAERS Safety Report 6189298-X (Version None)
Quarter: 2009Q2

REPORT INFORMATION
  Report Type: 
  Country: None (occurrence: None)
  Receive Date: 20090512
  Receipt Date: 20090429
  Transmission Date: 20091009
  Serious: Yes (Other)
  Sender: FDA-Public Use
  Company Number: TRP_06203_2009

PATIENT
  Age: 51 Year
  Sex: Female

DRUGS (3)
  1. RIBASPHERE [Suspect]
     Indication: HEPATITIS C
     Dosage: DF
     Dates: start: 20090116, end: 20090414
  2. PEG-INTRON [Suspect]
     Indication: HEPATITIS C
     Dosage: DF SUBCUTANEOUS
     Route: 058
     Dates: start: 20090116
  3. CELEXA [Concomitant]

REACTIONS (8)
  - DIARRHOEA [None]
  - DRY MOUTH [None]
  - DYSPNOEA [None]
  - HAEMOGLOBIN DECREASED [None]
  - MEMORY IMPAIRMENT [None]
  - NAUSEA [None]
  - PRODUCTIVE COUGH [None]
  - THIRST [None]
